FAERS Safety Report 4439499-3 (Version None)
Quarter: 2004Q3

REPORT INFORMATION
  Report Type: 
  Country: None (occurrence: None)
  Receive Date: 20040901
  Receipt Date: 20040901
  Transmission Date: 20050211
  Serious: Yes (Hospitalization)
  Sender: FDA-Public Use
  Company Number: None

PATIENT
  Sex: Female
  Weight: 92.9874 kg

DRUGS (4)
  1. PHENERGAN W/ CODEINE [Suspect]
     Indication: COUGH
     Dosage: PO
     Route: 048
     Dates: start: 20031202
  2. NORVASC [Concomitant]
  3. GLUCOPHAGE [Concomitant]
  4. GLUCOTROL [Concomitant]

REACTIONS (2)
  - TONGUE DRY [None]
  - TREMOR [None]
